FAERS Safety Report 20378723 (Version 2)
Quarter: 2022Q1

REPORT INFORMATION
  Report Type: Spontaneous
  Country: US (occurrence: US)
  Receive Date: 20220126
  Receipt Date: 20220204
  Transmission Date: 20220423
  Serious: Yes (Other)
  Sender: FDA-Public Use
  Company Number: US-CELLTRION INC.-2021US015798

PATIENT

DRUGS (4)
  1. TRUXIMA [Suspect]
     Active Substance: RITUXIMAB-ABBS
     Indication: Glomerulonephritis
     Dosage: 1000 MG Q4MONTHS
     Route: 042
     Dates: start: 20191030
  2. TRUXIMA [Suspect]
     Active Substance: RITUXIMAB-ABBS
     Dosage: 1000 MG Q4MONTHS
     Route: 042
     Dates: start: 20191210
  3. TRUXIMA [Suspect]
     Active Substance: RITUXIMAB-ABBS
     Dosage: 1000 MG (FREQUENCY UNDETERMINED)/2 VIALS OF 500 MG
     Route: 042
     Dates: start: 20211118
  4. TRUXIMA [Suspect]
     Active Substance: RITUXIMAB-ABBS
     Dosage: 1000 MG (FREQUENCY UNDETERMINED)/2 VIALS OF 500 MG
     Route: 042
     Dates: start: 20211118

REACTIONS (2)
  - Glomerulonephritis [Unknown]
  - Off label use [Unknown]
